FAERS Safety Report 7460533-0 (Version None)
Quarter: 2011Q2

REPORT INFORMATION
  Report Type: 
  Country: None (occurrence: None)
  Receive Date: 20110505
  Receipt Date: 20110504
  Transmission Date: 20111010
  Serious: Yes (Hospitalization)
  Sender: FDA-Public Use
  Company Number: GXKR2009DE03106

PATIENT
  Age: 69 Year
  Sex: Female
  Weight: 62 kg

DRUGS (5)
  1. RAMIPRIL [Suspect]
     Indication: HYPERTENSION
     Dosage: 5 MG, BID
     Route: 048
  2. AMLODIPINE BESYLATE AND VALSARTAN [Suspect]
     Indication: HYPERTENSION
     Dosage: 1 DF, QD
     Route: 048
  3. ASPIRIN [Concomitant]
     Indication: PERIPHERAL ARTERIAL OCCLUSIVE DISEASE
     Dosage: 100 MG, QD
     Route: 048
  4. BELOC ZOK [Suspect]
     Indication: HYPERTENSION
     Dosage: 142.5 MG (95-0-47.5 MG)
     Route: 048
     Dates: end: 20090101
  5. DOXAZOSIN MESYLATE [Suspect]
     Indication: HYPERTENSION
     Dosage: 2 MG, QD
     Route: 048

REACTIONS (2)
  - SYNCOPE [None]
  - SINUS BRADYCARDIA [None]
